FAERS Safety Report 23284811 (Version 1)
Quarter: 2023Q4

REPORT INFORMATION
  Report Type: Report from Study
  Country: CN (occurrence: CN)
  Receive Date: 20231211
  Receipt Date: 20231211
  Transmission Date: 20240109
  Serious: Yes (Hospitalization)
  Sender: FDA-Public Use
  Company Number: CN-Eisai-EC-2023-154762

PATIENT
  Age: 62 Year
  Sex: Male
  Weight: 54 kg

DRUGS (7)
  1. LENVATINIB [Suspect]
     Active Substance: LENVATINIB
     Indication: Hepatocellular carcinoma
     Route: 048
     Dates: start: 20210916, end: 20211028
  2. LENVATINIB [Suspect]
     Active Substance: LENVATINIB
     Route: 048
     Dates: start: 20220104, end: 20220113
  3. TORIPALIMAB [Suspect]
     Active Substance: TORIPALIMAB
     Indication: Hepatocellular carcinoma
     Dosage: 240 MG/PLACEBO
     Route: 041
     Dates: start: 20210916, end: 20220118
  4. DISODIUM FUMARATE [Concomitant]
     Active Substance: DISODIUM FUMARATE
     Indication: Hepatitis B
     Dates: start: 20210329
  5. NIFEDIPINE [Concomitant]
     Active Substance: NIFEDIPINE
     Indication: Hypertension
     Dates: start: 20211027, end: 20220115
  6. LEUCOGEN [Concomitant]
     Active Substance: LEUCOGEN
     Indication: Platelet count decreased
  7. LEVOTHYROXINE [Concomitant]
     Active Substance: LEVOTHYROXINE
     Indication: Hypothyroidism

REACTIONS (1)
  - Dysphagia [Recovered/Resolved]

NARRATIVE: CASE EVENT DATE: 20220113
